FAERS Safety Report 8266005-8 (Version None)
Quarter: 2012Q1

REPORT INFORMATION
  Report Type: 
  Country: None (occurrence: None)
  Receive Date: 20120327
  Receipt Date: 20090722
  Transmission Date: 20120608
  Serious: Yes (Hospitalization)
  Sender: FDA-Public Use
  Company Number: PHEH2009US08027

PATIENT
  Age: 45 Year
  Sex: Female

DRUGS (1)
  1. GLEEVEC [Suspect]
     Indication: GASTRIC CANCER
     Dosage: 400 MG, QD

REACTIONS (4)
  - BLOOD POTASSIUM INCREASED [None]
  - FLUID RETENTION [None]
  - DEHYDRATION [None]
  - ABDOMINAL CAVITY DRAINAGE [None]
